FAERS Safety Report 14248337 (Version 1)
Quarter: 2017Q4

REPORT INFORMATION
  Report Type: Spontaneous
  Country: FR (occurrence: FR)
  Receive Date: 20171204
  Receipt Date: 20171204
  Transmission Date: 20180321
  Serious: Yes (Other)
  Sender: FDA-Public Use
  Company Number: FR-TEVA-2017-FR-827924

PATIENT
  Age: 17 Year
  Sex: Female

DRUGS (5)
  1. VINCRISTINE TEVA [Suspect]
     Active Substance: VINCRISTINE
     Indication: LYMPHOMA
     Dosage: THIRD AND FOURTH CHEMOTHERAPY COURSES
     Route: 040
     Dates: start: 20170529, end: 20170703
  2. ENDOXAN [Suspect]
     Active Substance: CYCLOPHOSPHAMIDE
     Indication: LYMPHOMA
     Dosage: THIRD AND FOURTH CHEMOTHERAPY COURSES
     Route: 041
     Dates: start: 20170529, end: 20170703
  3. DACARBAZINE MEDAC [Suspect]
     Active Substance: DACARBAZINE
     Indication: LYMPHOMA
     Dosage: THIRD AND FOURTH CHEMOTHERAPY COURSES
     Route: 041
     Dates: start: 20170529, end: 20170628
  4. BACTRIM [Concomitant]
     Active Substance: SULFAMETHOXAZOLE\TRIMETHOPRIM
     Indication: CHEMOTHERAPY
  5. SOLUPRED [Concomitant]
     Active Substance: PREDNISOLONE
     Indication: LYMPHOMA
     Route: 048
     Dates: start: 20170529, end: 20170613

REACTIONS (1)
  - Palmar-plantar erythrodysaesthesia syndrome [Recovered/Resolved]

NARRATIVE: CASE EVENT DATE: 20170626
